FAERS Safety Report 9730236 (Version 1)
Quarter: 2013Q4

REPORT INFORMATION
  Report Type: Report from Study
  Country: US (occurrence: US)
  Receive Date: 20131202
  Receipt Date: 20131202
  Transmission Date: 20140711
  Serious: Yes (Other)
  Sender: FDA-Public Use
  Company Number: US-ROCHE-1308835

PATIENT
  Age: 52 Year
  Sex: Male
  Weight: 100.33 kg

DRUGS (8)
  1. NUTROPIN AQ [Suspect]
     Indication: GROWTH HORMONE DEFICIENCY
     Route: 058
  2. TAMIFLU [Suspect]
     Indication: PRODUCT USED FOR UNKNOWN INDICATION
     Route: 065
  3. CYMBALTA [Concomitant]
     Route: 048
  4. AMLODIPINE [Concomitant]
     Route: 048
  5. ANDROGEL [Concomitant]
     Route: 061
  6. AMBIEN [Concomitant]
     Dosage: HS PRN
     Route: 065
  7. XANAX [Concomitant]
     Dosage: PRN
     Route: 048
  8. NORCO [Concomitant]
     Dosage: PRN
     Route: 065

REACTIONS (3)
  - Fatigue [Unknown]
  - Malaise [Unknown]
  - Weight decreased [Unknown]
